FAERS Safety Report 8882242 (Version 1)
Quarter: 2012Q4

REPORT INFORMATION
  Report Type: 
  Country: BE (occurrence: BE)
  Receive Date: 20121102
  Receipt Date: 20121102
  Transmission Date: 20130627
  Serious: Yes (Death, Other)
  Sender: FDA-Public Use
  Company Number: PHHY2012BE098891

PATIENT
  Sex: Female

DRUGS (12)
  1. METHOTREXATE [Suspect]
     Indication: PLACENTAL NEOPLASM
     Dosage: 1000 mg/m2, UNK
  2. METHOTREXATE [Suspect]
     Dosage: 300 mg/m2, UNK
  3. ETOPOSIDE [Suspect]
     Indication: PLACENTAL NEOPLASM
     Dosage: 100 mg/m2, QW
  4. ETOPOSIDE [Suspect]
     Dosage: 150 mg/m2, UNK
  5. ETOPOSIDE [Suspect]
     Dosage: 450 mg/m2, UNK
  6. CISPLATIN [Suspect]
     Indication: PLACENTAL NEOPLASM
     Dosage: 75 mg/m2, UNK
     Route: 042
  7. DACTINOMYCIN [Suspect]
     Indication: PLACENTAL NEOPLASM
     Dosage: 0.5 mg, UNK
     Route: 042
  8. CARBOPLATIN [Concomitant]
  9. PACLITAXEL [Concomitant]
     Dosage: 75 mg/m2, UNK
  10. PACLITAXEL [Concomitant]
     Dosage: 90 mg/m2, UNK
  11. PREDNISOLONE [Concomitant]
     Dosage: 30 mg, BID
  12. CYCLOPHOSPHAMIDE [Concomitant]
     Dosage: 60 mg/m2, UNK

REACTIONS (4)
  - Malignant neoplasm progression [Fatal]
  - Metastases to liver [Unknown]
  - Ototoxicity [Unknown]
  - Bone marrow failure [Unknown]
